FAERS Safety Report 25502233 (Version 1)
Quarter: 2025Q3

REPORT INFORMATION
  Report Type: Spontaneous
  Country: US (occurrence: US)
  Receive Date: 20250702
  Receipt Date: 20250702
  Transmission Date: 20251020
  Serious: No
  Sender: TEVA
  Company Number: US-TEVA-VS-3344993

PATIENT
  Age: 8 Decade
  Sex: Male

DRUGS (1)
  1. ALBUTEROL SULFATE [Suspect]
     Active Substance: ALBUTEROL SULFATE
     Indication: Product used for unknown indication
     Route: 065

REACTIONS (5)
  - Respiratory tract congestion [Unknown]
  - Wheezing [Unknown]
  - Product quality issue [Unknown]
  - Off label use [Unknown]
  - Inappropriate schedule of product administration [Unknown]
